FAERS Safety Report 17680952 (Version 1)
Quarter: 2020Q2

REPORT INFORMATION
  Report Type: Spontaneous
  Country: SE (occurrence: SE)
  Receive Date: 20200417
  Receipt Date: 20200417
  Transmission Date: 20200714
  Serious: Yes (Other)
  Sender: FDA-Public Use
  Company Number: SE-MYLANLABS-2020M1038772

PATIENT
  Age: 20 Year
  Sex: Female
  Weight: 95 kg

DRUGS (3)
  1. ESCITALOPRAM [Concomitant]
     Active Substance: ESCITALOPRAM OXALATE
     Dates: start: 20190817
  2. LERGIGAN 25 MG FILMDRAGERADE TABLETTER [Suspect]
     Active Substance: PROMETHAZINE HYDROCHLORIDE
     Indication: INSOMNIA
     Dosage: 25 MILLIGRAM, QD
     Dates: start: 20200303, end: 20200303
  3. LERGIGAN 25 MG FILMDRAGERADE TABLETTER [Suspect]
     Active Substance: PROMETHAZINE HYDROCHLORIDE
     Dosage: 50 MILLIGRAM, QD
     Dates: start: 20200304, end: 20200305

REACTIONS (2)
  - Vision blurred [Unknown]
  - Formication [Unknown]

NARRATIVE: CASE EVENT DATE: 20200303
